FAERS Safety Report 5474636-3 (Version None)
Quarter: 2007Q3

REPORT INFORMATION
  Report Type: 
  Country: None (occurrence: None)
  Receive Date: 20070831
  Receipt Date: 20070430
  Transmission Date: 20080115
  Serious: No
  Sender: FDA-Public Use
  Company Number: 240762

PATIENT
  Age: 85 Year
  Sex: Male

DRUGS (3)
  1. LUCENTIS [Suspect]
     Indication: MACULAR DEGENERATION
     Dosage: INTRAVITREAL
     Dates: start: 20060828
  2. ANTIHYPERTENSIVE MEDICATION NOST (ANTIHYPERTENSIVE NOS) [Concomitant]
  3. XALATAN [Concomitant]

REACTIONS (2)
  - MACULAR HOLE [None]
  - VITREOUS DETACHMENT [None]
